FAERS Safety Report 4435304-X (Version None)
Quarter: 2004Q3

REPORT INFORMATION
  Report Type: 
  Country: None (occurrence: None)
  Receive Date: 20040827
  Receipt Date: 20040827
  Transmission Date: 20050211
  Serious: Yes (Other)
  Sender: FDA-Public Use
  Company Number: None

PATIENT
  Sex: Female
  Weight: 77.1115 kg

DRUGS (3)
  1. VIOXX [Suspect]
     Indication: ARTHRITIS
     Dosage: DAY ORAL
     Route: 048
     Dates: start: 20010309, end: 20010314
  2. SYNTHROID [Concomitant]
  3. OGEN [Concomitant]

REACTIONS (1)
  - EXTRASYSTOLES [None]
